FAERS Safety Report 4499439-8 (Version None)
Quarter: 2004Q4

REPORT INFORMATION
  Report Type: 
  Country: None (occurrence: None)
  Receive Date: 20041103
  Receipt Date: 20041014
  Transmission Date: 20050328
  Serious: No
  Sender: FDA-Public Use
  Company Number: 9062

PATIENT
  Age: 38 Year
  Sex: Male

DRUGS (6)
  1. LEUCOVORIN [Suspect]
     Dosage: 75 MG
     Dates: start: 20040414, end: 20040507
  2. UFT [Suspect]
     Dosage: 400 MG
     Dates: start: 20040414, end: 20040507
  3. CARBAZOCHROME SODIUM SULFONATE [Concomitant]
  4. OMEPRAZOLE [Concomitant]
  5. TRANEXAMIC ACID [Concomitant]
  6. ZOLPIDEM TARTRATE [Concomitant]

REACTIONS (3)
  - ANAEMIA [None]
  - ANOREXIA [None]
  - MALAISE [None]
